FAERS Safety Report 4887508-X (Version None)
Quarter: 2006Q1

REPORT INFORMATION
  Report Type: 
  Country: None (occurrence: None)
  Receive Date: 20060123
  Receipt Date: 20060109
  Transmission Date: 20060701
  Serious: Yes (Life-Threatening)
  Sender: FDA-Public Use
  Company Number: GB-JNJFOC-20060101824

PATIENT
  Age: 78 Year
  Sex: Male
  Weight: 75 kg

DRUGS (5)
  1. SUBLIMAZE [Suspect]
     Indication: DRUG USE FOR UNKNOWN INDICATION
     Route: 042
  2. SUXAMETHONIUM [Suspect]
     Indication: DRUG USE FOR UNKNOWN INDICATION
     Route: 042
  3. PROPOFOL [Suspect]
     Indication: DRUG USE FOR UNKNOWN INDICATION
     Route: 042
  4. CEFUROXIME [Concomitant]
     Indication: PERITONITIS
     Route: 042
  5. METRONIDAZOLE [Concomitant]
     Indication: PERITONITIS
     Route: 042

REACTIONS (3)
  - BRONCHOSPASM [None]
  - CIRCULATORY COLLAPSE [None]
  - SKIN REACTION [None]
